FAERS Safety Report 21534415 (Version 3)
Quarter: 2022Q4

REPORT INFORMATION
  Report Type: Report from Study
  Country: BE (occurrence: BE)
  Receive Date: 20221101
  Receipt Date: 20221214
  Transmission Date: 20230113
  Serious: Yes (Hospitalization)
  Sender: FDA-Public Use
  Company Number: BE-GENMAB-2022-01183

PATIENT
  Age: 54 Year
  Sex: Female

DRUGS (17)
  1. TISOTUMAB VEDOTIN [Suspect]
     Active Substance: TISOTUMAB VEDOTIN
     Indication: Cervix carcinoma
     Dosage: 2 MILLIGRAM/KILOGRAM, 1Q3W
     Route: 042
     Dates: start: 20221014
  2. PEMBROLIZUMAB [Suspect]
     Active Substance: PEMBROLIZUMAB
     Indication: Cervix carcinoma
     Dosage: 200 MILLIGRAM, 1Q3W
     Route: 042
     Dates: start: 20221014
  3. CARBOPLATIN [Suspect]
     Active Substance: CARBOPLATIN
     Indication: Cervix carcinoma
     Dosage: 5 AUC, 1Q3W
     Route: 042
     Dates: start: 20221014
  4. BEVACIZUMAB [Suspect]
     Active Substance: BEVACIZUMAB
     Indication: Cervix carcinoma
     Dosage: 15 MILLIGRAM/KILOGRAM, 1Q3W
     Route: 042
     Dates: start: 20221014
  5. PALONOSETRON [Concomitant]
     Active Substance: PALONOSETRON
     Indication: Chemotherapy side effect prophylaxis
     Dosage: 350 UG/DAY, PRIOR TO CARBOPLATIN
     Route: 042
     Dates: start: 20221014
  6. SOLU-MEDROL [Concomitant]
     Active Substance: METHYLPREDNISOLONE SODIUM SUCCINATE
     Indication: Chemotherapy side effect prophylaxis
     Dosage: 125 MILLIGRAM, PRIOR TO CARBOPLATINUM
     Route: 042
     Dates: start: 20221014
  7. MEDROL [Concomitant]
     Active Substance: METHYLPREDNISOLONE
     Indication: Chemotherapy side effect prophylaxis
     Dosage: 32 MILLIGRAM, THE DAY AFTER (DAY 2) AND TWO DAYS AFTER (DAY 3) THE ADMINISTRATION OF CARBOPLATIN
     Route: 048
     Dates: start: 20221015
  8. HYALURONATE SODIUM\TREHALOSE [Concomitant]
     Active Substance: HYALURONATE SODIUM\TREHALOSE
     Indication: Chemotherapy side effect prophylaxis
     Dosage: 1 DROP, QD (BOTH EYES)
     Route: 047
     Dates: start: 20221014
  9. PERINDOPRIL ERBUMINE [Concomitant]
     Active Substance: PERINDOPRIL ERBUMINE
     Indication: Hypertension
     Dosage: 10 MILLIGRAM, QD
     Route: 048
     Dates: start: 2020
  10. DAFALGAN [Concomitant]
     Active Substance: ACETAMINOPHEN
     Indication: Headache
     Dosage: 1 GRAM, PRN
     Route: 048
     Dates: start: 2014
  11. FOSFOMYCIN TROMETHAMINE [Concomitant]
     Active Substance: FOSFOMYCIN TROMETHAMINE
     Indication: Urinary tract infection
     Dosage: 3 GRAM, QD
     Route: 048
     Dates: start: 20221021, end: 20221021
  12. MICROLAX [SODIUM CITRATE;SODIUM LAURYL SULFOACETATE] [Concomitant]
     Indication: Constipation
     Dosage: 1 DOSAGE FORM, QD
     Route: 054
     Dates: start: 20221028, end: 20221028
  13. MOVICOL [Concomitant]
     Active Substance: POLYETHYLENE GLYCOL 3350\POTASSIUM CHLORIDE\SODIUM BICARBONATE\SODIUM CHLORIDE
     Indication: Constipation
     Dosage: 13.7 GRAM, TID
     Route: 048
     Dates: start: 20221028
  14. DIFLUCAN [Concomitant]
     Active Substance: FLUCONAZOLE
     Indication: Dry skin
     Dosage: 20 MILLIGRAM, QD
     Route: 042
     Dates: start: 20221024, end: 20221024
  15. ZYRTEC [Concomitant]
     Active Substance: CETIRIZINE HYDROCHLORIDE
     Indication: Dry skin
     Dosage: 10 MILLIGRAM, PRN
     Route: 048
     Dates: start: 20221024
  16. GLYCERIN\MINERAL OIL\PETROLATUM [Concomitant]
     Active Substance: GLYCERIN\MINERAL OIL\PETROLATUM
     Indication: Dry skin
     Dosage: 1 APPLICATION, QD
     Route: 061
     Dates: start: 20221024
  17. HUMAN RED BLOOD CELL [Concomitant]
     Active Substance: HUMAN RED BLOOD CELL
     Indication: Anaemia
     Dosage: 2 UNITS, QD
     Route: 042
     Dates: start: 20221026, end: 20221026

REACTIONS (1)
  - Viral infection [Recovered/Resolved]

NARRATIVE: CASE EVENT DATE: 20221021
